FAERS Safety Report 7765303-1 (Version None)
Quarter: 2011Q3

REPORT INFORMATION
  Report Type: 
  Country: None (occurrence: None)
  Receive Date: 20110919
  Receipt Date: 20110909
  Transmission Date: 20111222
  Serious: Yes (Hospitalization)
  Sender: FDA-Public Use
  Company Number: B0746509A

PATIENT
  Age: 37 Year
  Sex: Female

DRUGS (2)
  1. BUPROPION HCL [Suspect]
     Dosage: UNK/UNK/UNKNOWN
  2. DULOXETINE HYDROCHLORIDE [Suspect]
     Dosage: UNK/UNK/UNKNOWN

REACTIONS (9)
  - AMENORRHOEA [None]
  - TACHYCARDIA [None]
  - HOT FLUSH [None]
  - HYPERHIDROSIS [None]
  - MIGRAINE [None]
  - VISION BLURRED [None]
  - DRUG LEVEL INCREASED [None]
  - DRUG INTERACTION [None]
  - SUICIDAL IDEATION [None]
